FAERS Safety Report 21762689 (Version 1)
Quarter: 2022Q4

REPORT INFORMATION
  Report Type: Spontaneous
  Country: US (occurrence: US)
  Receive Date: 20221221
  Receipt Date: 20221221
  Transmission Date: 20230112
  Serious: Yes (Other)
  Sender: FDA-Public Use
  Company Number: US-MYLANLABS-2022M1144083

PATIENT
  Age: 27 Year
  Sex: Female

DRUGS (8)
  1. FLUVOXAMINE [Suspect]
     Active Substance: FLUVOXAMINE
     Indication: Obsessive-compulsive disorder
     Dosage: 200 MILLIGRAM, QD
     Route: 065
  2. FLUVOXAMINE [Suspect]
     Active Substance: FLUVOXAMINE
     Dosage: UNK (DOSE DECREASED)
     Route: 065
  3. BUPROPION [Interacting]
     Active Substance: BUPROPION
     Indication: Obsessive-compulsive disorder
     Dosage: 150 MILLIGRAM, QD
     Route: 065
  4. BUPROPION [Interacting]
     Active Substance: BUPROPION
     Dosage: 300 MILLIGRAM, QD
     Route: 065
  5. BUPROPION [Interacting]
     Active Substance: BUPROPION
     Dosage: 150 MILLIGRAM, QD; WITH MAINTENANCE OF SYMPTOMATIC BENEFIT
     Route: 065
  6. VORTIOXETINE [Interacting]
     Active Substance: VORTIOXETINE
     Indication: Obsessive-compulsive disorder
     Dosage: 20 MILLIGRAM, QD
     Route: 065
  7. VORTIOXETINE [Interacting]
     Active Substance: VORTIOXETINE
     Dosage: 40 MILLIGRAM, QD
     Route: 065
  8. VORTIOXETINE [Interacting]
     Active Substance: VORTIOXETINE
     Dosage: 20 MILLIGRAM, QD; LOW DOSE ADMINISTERED DUE TO INABILITY TO CONTINUE TO PAY OUT
     Route: 065

REACTIONS (6)
  - Weight increased [Recovered/Resolved]
  - Hyperhidrosis [Unknown]
  - Sedation [Recovering/Resolving]
  - Drug interaction [Unknown]
  - Off label use [Unknown]
  - Tremor [Unknown]
